FAERS Safety Report 18532652 (Version 1)
Quarter: 2020Q4

REPORT INFORMATION
  Report Type: Report from Study
  Country: None (occurrence: US)
  Receive Date: 20201123
  Receipt Date: 20201123
  Transmission Date: 20210114
  Serious: Yes (Hospitalization)
  Sender: FDA-Public Use
  Company Number: US-ABBVIE-20K-163-3560070-00

PATIENT
  Age: 66 Year
  Sex: Female
  Weight: 61.29 kg

DRUGS (1)
  1. CREON [Suspect]
     Active Substance: PANCRELIPASE AMYLASE\PANCRELIPASE LIPASE\PANCRELIPASE PROTEASE
     Indication: PROPHYLAXIS
     Dosage: 2 CAPSULES, THREE TIMES A DAY
     Route: 048
     Dates: start: 2017

REACTIONS (6)
  - Fall [Recovered/Resolved]
  - Hypotension [Recovering/Resolving]
  - Labile blood pressure [Recovered/Resolved]
  - Hypertension [Unknown]
  - Loss of consciousness [Recovered/Resolved]
  - Labile blood pressure [Recovering/Resolving]

NARRATIVE: CASE EVENT DATE: 20200830
